FAERS Safety Report 10375299 (Version 1)
Quarter: 2014Q1

REPORT INFORMATION
  Report Type: Spontaneous
  Country: US (occurrence: None)
  Receive Date: 20140306
  Receipt Date: 20140306
  Transmission Date: 20141002
  Serious: Yes (Other)
  Sender: FDA-Public Use
  Company Number: 163-21880-13040563

PATIENT
  Age: 73 Year
  Sex: Female
  Weight: 52.43 kg

DRUGS (1)
  1. REVLIMID (LENALIDOMIDE) (CAPSULES) [Suspect]
     Indication: LYMPHOMA
     Dosage: 25 MG, 28 IN 28 D, PO
     Route: 048
     Dates: start: 201302

REACTIONS (1)
  - Pancytopenia [None]
